FAERS Safety Report 4820969-0 (Version None)
Quarter: 2005Q4

REPORT INFORMATION
  Report Type: 
  Country: None (occurrence: None)
  Receive Date: 20051103
  Receipt Date: 20051220
  Transmission Date: 20060501
  Serious: Yes (Other)
  Sender: FDA-Public Use
  Company Number: P200500025

PATIENT
  Sex: Male

DRUGS (1)
  1. PLENAXIS [Suspect]
     Indication: PROSTATE CANCER
     Dosage: 100 MG, SINGLE, INTRAMUSCULAR
     Route: 030

REACTIONS (1)
  - LOSS OF CONSCIOUSNESS [None]
